FAERS Safety Report 4963214-8 (Version None)
Quarter: 2006Q2

REPORT INFORMATION
  Report Type: 
  Country: None (occurrence: None)
  Receive Date: 20060405
  Receipt Date: 20060105
  Transmission Date: 20061013
  Serious: Yes (Disabling, Other)
  Sender: FDA-Public Use
  Company Number: US-MERCK-0601USA00607

PATIENT
  Age: 60 Year
  Sex: Male
  Weight: 102 kg

DRUGS (1)
  1. VIOXX [Suspect]
     Indication: ARTHRITIS
     Route: 048

REACTIONS (5)
  - CARDIAC FAILURE CONGESTIVE [None]
  - CEREBROVASCULAR ACCIDENT [None]
  - CHRONIC OBSTRUCTIVE PULMONARY DISEASE [None]
  - EMOTIONAL DISTRESS [None]
  - MYOCARDIAL INFARCTION [None]
